FAERS Safety Report 15082872 (Version 1)
Quarter: 2018Q2

REPORT INFORMATION
  Report Type: Spontaneous
  Country: US (occurrence: US)
  Receive Date: 20180628
  Receipt Date: 20180628
  Transmission Date: 20180711
  Serious: No
  Sender: FDA-Public Use
  Company Number: US-ORPHAN EUROPE-2050122

PATIENT
  Age: 39 Year
  Sex: Female
  Weight: 102.04 kg

DRUGS (3)
  1. CYSTADANE [Suspect]
     Active Substance: BETAINE
     Indication: PRODUCT USED FOR UNKNOWN INDICATION
     Route: 048
     Dates: start: 2012
  2. CYSTADANE [Suspect]
     Active Substance: BETAINE
     Route: 048
     Dates: end: 2016
  3. CYSTADANE [Suspect]
     Active Substance: BETAINE
     Route: 048
     Dates: start: 201803

REACTIONS (1)
  - Exposure during pregnancy [Unknown]
